FAERS Safety Report 25586623 (Version 2)
Quarter: 2025Q3

REPORT INFORMATION
  Report Type: Spontaneous
  Country: US (occurrence: US)
  Receive Date: 20250721
  Receipt Date: 20250807
  Transmission Date: 20251020
  Serious: No
  Sender: BAUSCH AND LOMB
  Company Number: US-BAUSCHBL-2025BNL012644

PATIENT
  Age: 53 Year
  Sex: Female
  Weight: 66.67 kg

DRUGS (1)
  1. XIIDRA [Suspect]
     Active Substance: LIFITEGRAST
     Indication: Dry eye
     Dosage: 1 DROP IN EACH EYE TWICE DAILY
     Route: 047
     Dates: start: 20250713

REACTIONS (7)
  - Eyelid margin crusting [Recovered/Resolved]
  - Dry eye [Recovered/Resolved]
  - Product delivery mechanism issue [Unknown]
  - Product use complaint [Unknown]
  - Product lot number issue [Unknown]
  - Product expiration date issue [Unknown]
  - Product container issue [Unknown]
